FAERS Safety Report 7428631-5 (Version None)
Quarter: 2011Q2

REPORT INFORMATION
  Report Type: 
  Country: None (occurrence: None)
  Receive Date: 20110421
  Receipt Date: 20110414
  Transmission Date: 20111010
  Serious: Yes (Hospitalization)
  Sender: FDA-Public Use
  Company Number: VE-SANOFI-AVENTIS-2011SA020983

PATIENT
  Age: 68 Year
  Sex: Female
  Weight: 77 kg

DRUGS (8)
  1. OMACOR [Suspect]
     Route: 048
     Dates: start: 20041127, end: 20110318
  2. NPH INSULIN [Suspect]
     Route: 058
     Dates: start: 20080625, end: 20110319
  3. CARVEDILOL [Concomitant]
     Indication: HYPERTENSIVE CARDIOMYOPATHY
     Route: 048
     Dates: start: 20040101
  4. GLIMEPIRIDE [Suspect]
     Indication: DIABETES MELLITUS
     Route: 048
     Dates: start: 20041126, end: 20110319
  5. VALSARTAN [Concomitant]
     Indication: HYPERTENSIVE CARDIOMYOPATHY
     Route: 048
     Dates: start: 20040101
  6. CARVEDILOL [Concomitant]
     Route: 048
     Dates: start: 20040101
  7. ASPIRIN [Concomitant]
     Route: 048
  8. CLOPIDOGREL [Concomitant]
     Route: 048

REACTIONS (5)
  - MULTIPLE INJURIES [None]
  - HAEMOTHORAX [None]
  - SEPTIC SHOCK [None]
  - MULTIPLE FRACTURES [None]
  - URINE OUTPUT DECREASED [None]
